FAERS Safety Report 10769122 (Version 1)
Quarter: 2015Q1

REPORT INFORMATION
  Report Type: Spontaneous
  Country: FR (occurrence: None)
  Receive Date: 20150204
  Receipt Date: 20150204
  Transmission Date: 20150721
  Serious: Yes (Hospitalization)
  Sender: FDA-Public Use
  Company Number: 2015FR000750

PATIENT
  Age: 79 Year
  Sex: Male

DRUGS (3)
  1. ELIGARD [Suspect]
     Active Substance: LEUPROLIDE ACETATE
     Indication: PROSTATE CANCER
     Dosage: Q3MONTHS, SUBCUTANEOUS
     Route: 058
     Dates: start: 200811
  2. NEBIVOLOL (NEBIVOLOL) (NEBIVOLOL) [Suspect]
     Active Substance: NEBIVOLOL
     Indication: PROSTATE CANCER
     Route: 048
     Dates: end: 20141223
  3. TANAKAN [Suspect]
     Active Substance: GINKGO
     Indication: PROSTATE CANCER
     Route: 048
     Dates: start: 201412, end: 201412

REACTIONS (7)
  - Hallucination, auditory [None]
  - Glycosylated haemoglobin increased [None]
  - Somnolence [None]
  - Ventricular extrasystoles [None]
  - Psychomotor retardation [None]
  - Disorientation [None]
  - Hypoglycaemia [None]

NARRATIVE: CASE EVENT DATE: 201412
